FAERS Safety Report 8405606-0 (Version None)
Quarter: 2012Q2

REPORT INFORMATION
  Report Type: 
  Country: None (occurrence: None)
  Receive Date: 20120604
  Receipt Date: 20120529
  Transmission Date: 20120825
  Serious: No
  Sender: FDA-Public Use
  Company Number: US-BIOGENIDEC-2012BI018971

PATIENT
  Age: 51 Year
  Sex: Female

DRUGS (3)
  1. TYSABRI [Suspect]
     Indication: MULTIPLE SCLEROSIS
     Route: 042
     Dates: start: 20061108, end: 20070627
  2. TYSABRI [Suspect]
     Route: 042
     Dates: start: 20091229
  3. TYSABRI [Suspect]
     Route: 042
     Dates: start: 20071026, end: 20080121

REACTIONS (1)
  - VIRAL INFECTION [None]
